FAERS Safety Report 20174300 (Version 1)
Quarter: 2021Q4

REPORT INFORMATION
  Report Type: Spontaneous
  Country: US (occurrence: US)
  Receive Date: 20211213
  Receipt Date: 20211213
  Transmission Date: 20220303
  Serious: Yes (Other)
  Sender: FDA-Public Use
  Company Number: US-HETERO-HET2021US02208

PATIENT
  Age: 78 Year
  Sex: Male

DRUGS (3)
  1. OMEPRAZOLE [Suspect]
     Active Substance: OMEPRAZOLE
     Indication: Barrett^s oesophagus
     Dosage: UNK
     Route: 065
  2. NIFEDIPINE [Concomitant]
     Active Substance: NIFEDIPINE
     Indication: Barrett^s oesophagus
     Dosage: UNK
     Route: 065
  3. CARVEDILOL [Concomitant]
     Active Substance: CARVEDILOL
     Indication: Barrett^s oesophagus
     Dosage: UNK
     Route: 065

REACTIONS (4)
  - Intestinal pseudo-obstruction [Recovering/Resolving]
  - Hypokalaemia [Recovering/Resolving]
  - Hypomagnesaemia [Recovering/Resolving]
  - Hypocalcaemia [Recovering/Resolving]
